FAERS Safety Report 20749563 (Version 1)
Quarter: 2022Q2

REPORT INFORMATION
  Report Type: Spontaneous
  Country: FR (occurrence: FR)
  Receive Date: 20220426
  Receipt Date: 20220426
  Transmission Date: 20220721
  Serious: Yes (Other)
  Sender: FDA-Public Use
  Company Number: None

PATIENT
  Age: 59 Year
  Sex: Male

DRUGS (6)
  1. METHYLPREDNISOLONE [Suspect]
     Active Substance: METHYLPREDNISOLONE
     Indication: Adenocarcinoma gastric
     Dosage: 40 MILLIGRAM, CYCLE
     Route: 042
     Dates: start: 20211209, end: 20220216
  2. CAPECITABINE [Suspect]
     Active Substance: CAPECITABINE
     Indication: Adenocarcinoma gastric
     Dosage: 54.6 GRAM, MONTHLY (06-JAN-2022)
     Route: 048
     Dates: end: 20220302
  3. OXALIPLATIN [Suspect]
     Active Substance: OXALIPLATIN
     Indication: Adenocarcinoma gastric
     Dosage: 110 MILLIGRAM, CYCLE
     Route: 041
     Dates: start: 20211209, end: 20211222
  4. OXALIPLATIN [Suspect]
     Active Substance: OXALIPLATIN
     Dosage: 220 MILLIGRAM, CYCLE
     Route: 041
     Dates: start: 20220105, end: 20220326
  5. FLUOROURACIL [Suspect]
     Active Substance: FLUOROURACIL
     Indication: Adenocarcinoma gastric
     Dosage: 3950 MILLIGRAM, CYCLE
     Route: 041
     Dates: start: 20211209, end: 20211222
  6. LEVOLEUCOVORIN CALCIUM [Concomitant]
     Active Substance: LEVOLEUCOVORIN CALCIUM
     Dosage: 330 MILLIGRAM, CYCLE
     Route: 042
     Dates: start: 20211209, end: 20211222

REACTIONS (1)
  - Thrombotic microangiopathy [Not Recovered/Not Resolved]

NARRATIVE: CASE EVENT DATE: 20211230
